FAERS Safety Report 14110173 (Version 7)
Quarter: 2019Q1

REPORT INFORMATION
  Report Type: Spontaneous
  Country: JP (occurrence: JP)
  Receive Date: 20171020
  Receipt Date: 20190227
  Transmission Date: 20190417
  Serious: Yes (Death, Hospitalization, Other)
  Sender: FDA-Public Use
  Company Number: JP-009507513-1704JPN002056J

PATIENT
  Age: 81 Year
  Sex: Male
  Weight: 70 kg

DRUGS (10)
  1. MAGMITT [Concomitant]
     Active Substance: MAGNESIUM OXIDE
     Indication: DYSCHEZIA
     Dosage: 330 MG, TID
     Route: 048
  2. BACTRAMIN [Concomitant]
     Active Substance: SULFAMETHOXAZOLE\TRIMETHOPRIM
     Indication: PROPHYLAXIS
     Dosage: 1 DF, QD
     Route: 048
  3. EPADEL [Concomitant]
     Active Substance: ICOSAPENT
     Indication: HYPERLIPIDAEMIA
     Dosage: 900 MG, BID
     Route: 048
  4. KEYTRUDA [Suspect]
     Active Substance: PEMBROLIZUMAB
     Indication: LUNG ADENOCARCINOMA
     Dosage: 200 MILLIGRAM, Q3W
     Route: 041
     Dates: start: 20170406, end: 20170406
  5. MIYA-BM [Concomitant]
     Active Substance: CLOSTRIDIUM BUTYRICUM SPORES STRAIN M-55
     Indication: DYSCHEZIA
     Dosage: 1 G, TID
     Route: 048
  6. CRESTOR [Concomitant]
     Active Substance: ROSUVASTATIN CALCIUM
     Indication: HYPERLIPIDAEMIA
     Dosage: 2.5 MG, QD
     Route: 048
  7. FEBURIC [Concomitant]
     Active Substance: FEBUXOSTAT
     Indication: HYPERURICAEMIA
     Dosage: 10 MG, QD
     Route: 048
  8. PREDNISOLONE. [Concomitant]
     Active Substance: PREDNISOLONE
     Dosage: 3 MILLIGRAM
     Route: 048
     Dates: start: 20170307, end: 20170420
  9. LANSOPRAZOLE OD [Concomitant]
     Active Substance: LANSOPRAZOLE
     Indication: PROPHYLAXIS
     Dosage: 30 MG, QD
     Route: 048
  10. PREDNISOLONE. [Concomitant]
     Active Substance: PREDNISOLONE
     Indication: RADIATION PNEUMONITIS
     Dosage: 5 MILLIGRAM
     Route: 048
     Dates: start: 20161005, end: 20170306

REACTIONS (4)
  - Pleural effusion [Unknown]
  - Pyrexia [Recovered/Resolved]
  - Malignant neoplasm progression [Fatal]
  - Interstitial lung disease [Not Recovered/Not Resolved]

NARRATIVE: CASE EVENT DATE: 20170411
